FAERS Safety Report 6363315-6 (Version None)
Quarter: 2009Q3

REPORT INFORMATION
  Report Type: 
  Country: None (occurrence: None)
  Receive Date: 20090919
  Receipt Date: 20090625
  Transmission Date: 20100115
  Serious: No
  Sender: FDA-Public Use
  Company Number: US-ABBOTT-09P-163-0581808-00

PATIENT
  Sex: Female
  Weight: 51.756 kg

DRUGS (2)
  1. HUMIRA [Suspect]
     Indication: RHEUMATOID ARTHRITIS
     Route: 058
     Dates: start: 20070624
  2. HUMIRA [Suspect]
     Indication: EXOSTOSIS

REACTIONS (1)
  - INJECTION SITE IRRITATION [None]
